FAERS Safety Report 22841465 (Version 3)
Quarter: 2023Q4

REPORT INFORMATION
  Report Type: Other
  Country: JP (occurrence: JP)
  Receive Date: 20230821
  Receipt Date: 20231128
  Transmission Date: 20240109
  Serious: Yes (Hospitalization, Other)
  Sender: FDA-Public Use
  Company Number: JP-ASTELLAS-2023JP009639

PATIENT
  Age: 76 Year
  Sex: Male

DRUGS (8)
  1. MIRABEGRON [Suspect]
     Active Substance: MIRABEGRON
     Indication: Hypertonic bladder
     Dosage: 25 MG, ONCE DAILY, AFTER BREAKFAST
     Route: 048
     Dates: start: 20220225, end: 20220331
  2. MIRABEGRON [Suspect]
     Active Substance: MIRABEGRON
     Indication: Dysuria
     Dosage: 25 MG, TWICE DAILY (TAKEN IN THE MORNING AND EVENING)
     Route: 048
     Dates: start: 20220401, end: 20220513
  3. SILODOSIN [Concomitant]
     Active Substance: SILODOSIN
     Indication: Benign prostatic hyperplasia
     Route: 048
     Dates: start: 20211101
  4. SILODOSIN [Concomitant]
     Active Substance: SILODOSIN
     Indication: Dysuria
  5. DUTASTERIDE [Concomitant]
     Active Substance: DUTASTERIDE
     Indication: Benign prostatic hyperplasia
     Dosage: 0.5 MG, ONCE DAILY, AFTER BREAKFAST
     Route: 048
     Dates: start: 20211101, end: 20220401
  6. DUTASTERIDE [Concomitant]
     Active Substance: DUTASTERIDE
     Indication: Dysuria
  7. TADALAFIL [Concomitant]
     Active Substance: TADALAFIL
     Indication: Dysuria
     Route: 048
     Dates: start: 20220513, end: 20220519
  8. DAPAGLIFLOZIN [Concomitant]
     Active Substance: DAPAGLIFLOZIN
     Indication: Diabetes mellitus
     Dosage: UNK UNK, UNKNOWN FREQ.
     Route: 048

REACTIONS (6)
  - Renal failure [Recovered/Resolved]
  - Hydronephrosis [Recovered/Resolved]
  - Urinary retention [Recovered/Resolved]
  - Dysuria [Unknown]
  - Underdose [Unknown]
  - Off label use [Unknown]

NARRATIVE: CASE EVENT DATE: 20220225
